FAERS Safety Report 12707872 (Version 4)
Quarter: 2017Q1

REPORT INFORMATION
  Report Type: Spontaneous
  Country: PE (occurrence: PE)
  Receive Date: 20160901
  Receipt Date: 20170320
  Transmission Date: 20170428
  Serious: Yes (Other)
  Sender: FDA-Public Use
  Company Number: PE-PFIZER INC-2016403697

PATIENT
  Age: 78 Year
  Sex: Female

DRUGS (4)
  1. GLAUCOTENSIL /00971201/ [Concomitant]
     Dosage: UNK
  2. ALLERGAN [Concomitant]
     Active Substance: PAPAIN
     Dosage: UNK
  3. VISCOTEARS [Concomitant]
     Active Substance: CARBOMER
     Dosage: UNK
  4. XALATAN [Suspect]
     Active Substance: LATANOPROST
     Indication: GLAUCOMA
     Dosage: 1 GTT ON EACH EYE, DAILY
     Route: 047
     Dates: start: 2012

REACTIONS (4)
  - Vulval cancer [Not Recovered/Not Resolved]
  - Product quality issue [Unknown]
  - Dry eye [Recovered/Resolved]
  - Malaise [Unknown]

NARRATIVE: CASE EVENT DATE: 2013
